FAERS Safety Report 14877647 (Version 1)
Quarter: 2018Q2

REPORT INFORMATION
  Report Type: Not Available
  Country: US (occurrence: US)
  Receive Date: 20180510
  Receipt Date: 20180510
  Transmission Date: 20180711
  Serious: No
  Sender: FDA-Public Use
  Company Number: US-NEUROCRINE BIOSCIENCES INC.-2018NBI01255

PATIENT
  Age: 48 Year
  Sex: Female

DRUGS (13)
  1. LANTUS [Concomitant]
     Active Substance: INSULIN GLARGINE
  2. PEPCID [Concomitant]
     Active Substance: FAMOTIDINE
  3. LEVOTHYROXINE. [Concomitant]
     Active Substance: LEVOTHYROXINE
  4. AMITIZA [Concomitant]
     Active Substance: LUBIPROSTONE
  5. BENZTROPINE. [Concomitant]
     Active Substance: BENZTROPINE
  6. SERTRALINE [Concomitant]
     Active Substance: SERTRALINE HYDROCHLORIDE
  7. INGREZZA [Suspect]
     Active Substance: VALBENAZINE
     Indication: TARDIVE DYSKINESIA
     Route: 048
     Dates: start: 20180314, end: 2018
  8. CLONAZEPAM. [Concomitant]
     Active Substance: CLONAZEPAM
  9. LISINOPRIL. [Concomitant]
     Active Substance: LISINOPRIL
  10. SAPHRIS [Concomitant]
     Active Substance: ASENAPINE MALEATE
  11. HALOPERIDOL. [Concomitant]
     Active Substance: HALOPERIDOL
  12. HUMALOG [Concomitant]
     Active Substance: INSULIN LISPRO
  13. INVEGA SUSTENNA [Concomitant]
     Active Substance: PALIPERIDONE PALMITATE

REACTIONS (2)
  - Aggression [Unknown]
  - Sedation [Unknown]

NARRATIVE: CASE EVENT DATE: 20180321
